FAERS Safety Report 11783267 (Version 1)
Quarter: 2015Q4

REPORT INFORMATION
  Report Type: Spontaneous
  Country: DE (occurrence: DE)
  Receive Date: 20151127
  Receipt Date: 20151127
  Transmission Date: 20160305
  Serious: Yes (Other)
  Sender: FDA-Public Use
  Company Number: GXKR2015DE005203

PATIENT
  Age: 23 Year
  Sex: Female
  Weight: 68 kg

DRUGS (5)
  1. FOLSAEURE [Concomitant]
     Active Substance: FOLIC ACID
     Indication: PROPHYLAXIS OF NEURAL TUBE DEFECT
     Route: 048
  2. DIAZEPAM. [Concomitant]
     Active Substance: DIAZEPAM
     Indication: RESTLESSNESS
     Dosage: 5 MG, QD ON DEMAND
  3. SERTRALINE [Suspect]
     Active Substance: SERTRALINE HYDROCHLORIDE
     Dosage: 800 MG, ONCE/SINGLE
     Route: 048
     Dates: start: 20140703, end: 20140703
  4. SERTRALINE [Suspect]
     Active Substance: SERTRALINE HYDROCHLORIDE
     Indication: DEPRESSION
     Dosage: 150 MG, QD
     Route: 048
     Dates: end: 20140718
  5. PROMETHAZINE [Suspect]
     Active Substance: PROMETHAZINE\PROMETHAZINE HYDROCHLORIDE
     Indication: RESTLESSNESS
     Dosage: 200 MG, QD
     Route: 048
     Dates: start: 20140601, end: 20140718

REACTIONS (3)
  - Urinary tract infection [Unknown]
  - Suicide attempt [Unknown]
  - Maternal exposure during pregnancy [Unknown]
